FAERS Safety Report 25473135 (Version 1)
Quarter: 2025Q2

REPORT INFORMATION
  Report Type: Report from Study
  Country: US (occurrence: US)
  Receive Date: 20250624
  Receipt Date: 20250624
  Transmission Date: 20250716
  Serious: Yes (Hospitalization)
  Sender: SPRINGWORKS THERAPEUTIC
  Company Number: US-SPRINGWORKS THERAPEUTICS-SW-002944

PATIENT
  Age: 31 Year
  Sex: Female

DRUGS (1)
  1. MIRDAMETINIB [Suspect]
     Active Substance: MIRDAMETINIB
     Indication: Product used for unknown indication
     Dosage: 3 MILLIGRAM, BID FOR 21 DAYS, THEN 7 DAYS OFF
     Route: 048
     Dates: start: 20250514

REACTIONS (2)
  - Seizure [Recovering/Resolving]
  - Neuralgia [Recovering/Resolving]

NARRATIVE: CASE EVENT DATE: 20250611
